FAERS Safety Report 10030826 (Version 1)
Quarter: 2014Q1

REPORT INFORMATION
  Report Type: Spontaneous
  Country: US (occurrence: US)
  Receive Date: 20140323
  Receipt Date: 20140323
  Transmission Date: 20141002
  Serious: No
  Sender: FDA-Public Use
  Company Number: US-ALLERGAN-1315555US

PATIENT
  Age: 29 Year
  Sex: Female

DRUGS (4)
  1. LATISSE 0.03% [Suspect]
     Indication: GROWTH OF EYELASHES
  2. ACZONE [Concomitant]
     Indication: ACNE
     Dosage: UNK UNK, BID
     Route: 061
  3. CEPHALEXIN                         /00145501/ [Concomitant]
     Indication: ACNE
     Dosage: 500 MG, BID
     Route: 048
  4. METROGEL [Concomitant]
     Indication: ACNE
     Dosage: UNK UNK, BID
     Route: 061

REACTIONS (3)
  - Incorrect dose administered [Unknown]
  - Wrong technique in drug usage process [Unknown]
  - Trichorrhexis [Unknown]
